FAERS Safety Report 23867217 (Version 1)
Quarter: 2024Q2

REPORT INFORMATION
  Report Type: Spontaneous
  Country: NL (occurrence: NL)
  Receive Date: 20240517
  Receipt Date: 20240517
  Transmission Date: 20240717
  Serious: Yes (Hospitalization, Other)
  Sender: FDA-Public Use
  Company Number: NL-JNJFOC-20240486044

PATIENT
  Age: 84 Year
  Sex: Female
  Weight: 54 kg

DRUGS (10)
  1. AMLODIPINE [Suspect]
     Active Substance: AMLODIPINE BESYLATE
     Indication: Hypertension
     Dosage: 5 MILLIGRAM, ONCE A DAY
     Route: 065
  2. CITALOPRAM [Suspect]
     Active Substance: CITALOPRAM\CITALOPRAM HYDROBROMIDE
     Indication: Dementia
     Dosage: 20 MILLIGRAM, ONCE A DAY (ZN 1MG-  20 MG 1DD1)
     Route: 065
  3. METOPROLOL [Suspect]
     Active Substance: METOPROLOL
     Indication: Hypertension
     Dosage: 50 MILLIGRAM, ONCE A DAY
     Route: 065
  4. LOSARTAN [Suspect]
     Active Substance: LOSARTAN
     Indication: Hypertension
     Dosage: 50 MILLIGRAM, ONCE A DAY
     Route: 065
  5. LORAZEPAM [Suspect]
     Active Substance: LORAZEPAM
     Indication: Dementia
     Dosage: 1 MILLIGRAM (1MG ZN, 2DD1)
     Route: 065
  6. RISPERDAL [Suspect]
     Active Substance: RISPERIDONE
     Indication: Psychiatric decompensation
     Dosage: UNK
     Route: 065
  7. RISPERDAL [Suspect]
     Active Substance: RISPERIDONE
     Dosage: 1 MILLIGRAM, ONCE A DAY
     Route: 065
  8. EUTHYROX [Suspect]
     Active Substance: LEVOTHYROXINE SODIUM
     Indication: Hypothyroidism
     Dosage: 88 MICROGRAM, ONCE A DAY
     Route: 065
  9. LITHIUM [Suspect]
     Active Substance: LITHIUM
     Indication: Psychiatric decompensation
     Dosage: 100 MILLIGRAM, ONCE A DAY
     Route: 065
  10. LITHIUM [Suspect]
     Active Substance: LITHIUM
     Dosage: 400 MILLIGRAM, ONCE A DAY
     Route: 065

REACTIONS (1)
  - Neuroleptic malignant syndrome [Recovering/Resolving]
